FAERS Safety Report 9121290 (Version 1)
Quarter: 2013Q1

REPORT INFORMATION
  Report Type: Spontaneous
  Country: US (occurrence: US)
  Receive Date: 20130225
  Receipt Date: 20130225
  Transmission Date: 20140127
  Serious: No
  Sender: FDA-Public Use
  Company Number: US-ENDO PHARMACEUTICALS INC.-FORT20110075

PATIENT
  Sex: Male
  Weight: 77.18 kg

DRUGS (2)
  1. FORTESTA [Suspect]
     Indication: BLOOD TESTOSTERONE DECREASED
     Route: 061
     Dates: start: 201107
  2. FORTESTA [Suspect]
     Route: 061
     Dates: end: 20110808

REACTIONS (2)
  - Application site pain [Unknown]
  - Application site rash [Unknown]
